FAERS Safety Report 18279781 (Version 1)
Quarter: 2020Q3

REPORT INFORMATION
  Report Type: Spontaneous
  Country: US (occurrence: US)
  Receive Date: 20200918
  Receipt Date: 20200918
  Transmission Date: 20201103
  Serious: Yes (Hospitalization, Other)
  Sender: FDA-Public Use
  Company Number: US-B.I. PHARMACEUTICALS,INC./RIDGEFIELD-2020-BI-048949

PATIENT
  Age: 61 Year
  Sex: Female

DRUGS (1)
  1. SPIRIVA RESPIMAT [Suspect]
     Active Substance: TIOTROPIUM BROMIDE
     Indication: CHRONIC OBSTRUCTIVE PULMONARY DISEASE
     Dosage: 2.5MCG; 2 SPRAYS ONCE DAILY
     Route: 065
     Dates: start: 2016

REACTIONS (6)
  - Hypoaesthesia [Not Recovered/Not Resolved]
  - Rhinorrhoea [Unknown]
  - Aphonia [Unknown]
  - Nasopharyngitis [Unknown]
  - Cerebrovascular accident [Recovered/Resolved with Sequelae]
  - Muscular weakness [Not Recovered/Not Resolved]

NARRATIVE: CASE EVENT DATE: 20180530
